FAERS Safety Report 22143659 (Version 1)
Quarter: 2023Q1

REPORT INFORMATION
  Report Type: Spontaneous
  Country: US (occurrence: US)
  Receive Date: 20230327
  Receipt Date: 20230327
  Transmission Date: 20230417
  Serious: Yes (Other)
  Sender: FDA-Public Use
  Company Number: US-ADVANTICEHEALTH-2023-US-007399

PATIENT
  Sex: Female

DRUGS (1)
  1. NEW SKIN BANDAGE [Suspect]
     Active Substance: BENZETHONIUM CHLORIDE
     Indication: Prophylaxis
     Route: 061

REACTIONS (3)
  - Application site infection [Unknown]
  - Application site hypertrophy [Unknown]
  - Drainage [Unknown]
